FAERS Safety Report 18665296 (Version 1)
Quarter: 2020Q4

REPORT INFORMATION
  Report Type: Spontaneous
  Country: US (occurrence: US)
  Receive Date: 20201225
  Receipt Date: 20201225
  Transmission Date: 20210114
  Serious: Yes (Other)
  Sender: FDA-Public Use
  Company Number: NVSC2020US239920

PATIENT
  Sex: Female

DRUGS (9)
  1. REXULTI [Suspect]
     Active Substance: BREXPIPRAZOLE
     Indication: OBSESSIVE-COMPULSIVE DISORDER
  2. SINGULAIR [Suspect]
     Active Substance: MONTELUKAST SODIUM
     Indication: PRODUCT USED FOR UNKNOWN INDICATION
     Dosage: UNK
     Route: 065
  3. TRILEPTAL [Suspect]
     Active Substance: OXCARBAZEPINE
     Indication: PRODUCT USED FOR UNKNOWN INDICATION
     Dosage: UNK
     Route: 065
     Dates: end: 202007
  4. REXULTI [Suspect]
     Active Substance: BREXPIPRAZOLE
     Indication: DEPRESSION
     Dosage: 0.5 MG
     Route: 065
     Dates: start: 202006, end: 20200729
  5. REXULTI [Suspect]
     Active Substance: BREXPIPRAZOLE
     Indication: ANXIETY
  6. ATIVAN [Concomitant]
     Active Substance: LORAZEPAM
     Indication: PRODUCT USED FOR UNKNOWN INDICATION
     Dosage: UNK
     Route: 065
  7. REXULTI [Suspect]
     Active Substance: BREXPIPRAZOLE
     Indication: BIPOLAR DISORDER
  8. L-GLUTAMINE [GLUTAMIC ACID] [Suspect]
     Active Substance: GLUTAMIC ACID
     Indication: ABDOMINAL HERNIA
     Dosage: UNK
     Route: 065
  9. AMBIEN [Concomitant]
     Active Substance: ZOLPIDEM TARTRATE
     Indication: PRODUCT USED FOR UNKNOWN INDICATION
     Dosage: UNK
     Route: 065

REACTIONS (16)
  - Pruritus [Not Recovered/Not Resolved]
  - Psychotic disorder [Unknown]
  - Potentiating drug interaction [Unknown]
  - Food allergy [Not Recovered/Not Resolved]
  - Weight decreased [Unknown]
  - Rash [Not Recovered/Not Resolved]
  - Flushing [Not Recovered/Not Resolved]
  - Abdominal pain [Recovering/Resolving]
  - Hypotonia [Not Recovered/Not Resolved]
  - Drug hypersensitivity [Unknown]
  - Irritable bowel syndrome [Recovering/Resolving]
  - Dyspnoea [Unknown]
  - Drug effective for unapproved indication [Unknown]
  - Reaction to azo-dyes [Not Recovered/Not Resolved]
  - Drug interaction [Unknown]
  - Depressed level of consciousness [Unknown]
